FAERS Safety Report 19244870 (Version 3)
Quarter: 2021Q2

REPORT INFORMATION
  Report Type: Spontaneous
  Country: US (occurrence: US)
  Receive Date: 20210511
  Receipt Date: 20210611
  Transmission Date: 20210717
  Serious: No
  Sender: FDA-Public Use
  Company Number: US-SA-2021SA154307

PATIENT
  Age: 68 Year
  Sex: Male

DRUGS (1)
  1. LANTUS SOLOSTAR [Suspect]
     Active Substance: INSULIN GLARGINE
     Indication: TYPE 2 DIABETES MELLITUS
     Dosage: 60 IU, AT NIGHT
     Dates: start: 202101

REACTIONS (1)
  - Lack of injection site rotation [Unknown]

NARRATIVE: CASE EVENT DATE: 2021
